FAERS Safety Report 7952977-5 (Version None)
Quarter: 2011Q4

REPORT INFORMATION
  Report Type: 
  Country: None (occurrence: None)
  Receive Date: 20111201
  Receipt Date: 20111129
  Transmission Date: 20120403
  Serious: Yes (Other)
  Sender: FDA-Public Use
  Company Number: PHEH2006US08849

PATIENT
  Sex: Female
  Weight: 58.503 kg

DRUGS (19)
  1. CLIMARA [Suspect]
  2. MULTIVITAMIN ^LAPPE^ [Concomitant]
  3. ASPIRIN [Concomitant]
     Dosage: 81 MG, QD
  4. ZETIA [Concomitant]
  5. PROPOXYPHENE NAPSYLATE W/ ACETAMINOPHEN [Concomitant]
  6. TOBRADEX [Concomitant]
  7. CIPRO [Concomitant]
  8. ULTRAM [Concomitant]
  9. PRINIVIL [Concomitant]
  10. ERY-TAB [Concomitant]
  11. ESTRADERM [Suspect]
     Indication: HORMONE REPLACEMENT THERAPY
     Route: 062
     Dates: start: 19940101, end: 20040101
  12. CRESTOR [Concomitant]
     Dosage: 5 MG, QD
  13. ZITHROMAX [Concomitant]
  14. TRIMOX [Concomitant]
  15. CEPHALEXIN [Concomitant]
     Dosage: 500 MG, UNK
  16. CITRACAL [Concomitant]
  17. LORAZEPAM [Concomitant]
     Dosage: 0.5 MG, UNK
  18. NEURONTIN [Concomitant]
  19. PREMARIN [Suspect]
     Indication: MENOPAUSAL SYMPTOMS

REACTIONS (46)
  - MITRAL VALVE INCOMPETENCE [None]
  - OVARIAN CANCER [None]
  - HYPERTENSION [None]
  - HYDRONEPHROSIS [None]
  - COLITIS ISCHAEMIC [None]
  - NAUSEA [None]
  - FATIGUE [None]
  - COLONIC POLYP [None]
  - INTERVERTEBRAL DISC DEGENERATION [None]
  - PELVIC MASS [None]
  - RENAL CYST [None]
  - LYMPHADENOPATHY [None]
  - DYSPNOEA EXERTIONAL [None]
  - DIVERTICULUM [None]
  - MUSCLE STRAIN [None]
  - MYOFASCIAL PAIN SYNDROME [None]
  - HELICOBACTER GASTRITIS [None]
  - ARTERIOSCLEROSIS [None]
  - METASTASES TO OVARY [None]
  - CHOLELITHIASIS [None]
  - DEFORMITY [None]
  - GASTROOESOPHAGEAL REFLUX DISEASE [None]
  - ROTATOR CUFF SYNDROME [None]
  - PAIN [None]
  - ANXIETY [None]
  - CARBOHYDRATE ANTIGEN 125 INCREASED [None]
  - INTERVERTEBRAL DISC PROTRUSION [None]
  - DYSPHAGIA [None]
  - POSTOPERATIVE ILEUS [None]
  - SPINAL CLAUDICATION [None]
  - INJURY [None]
  - OVARIAN CANCER RECURRENT [None]
  - WEIGHT DECREASED [None]
  - ABDOMINAL PAIN [None]
  - ADRENAL MASS [None]
  - URINARY INCONTINENCE [None]
  - ABDOMINAL PAIN UPPER [None]
  - METAPLASIA [None]
  - NEUROPATHY PERIPHERAL [None]
  - FAECAL INCONTINENCE [None]
  - HIATUS HERNIA [None]
  - ADNEXA UTERI MASS [None]
  - CONSTIPATION [None]
  - GASTRITIS [None]
  - PAIN IN EXTREMITY [None]
  - ABDOMINAL MASS [None]
